FAERS Safety Report 9098500 (Version 1)
Quarter: 2013Q1

REPORT INFORMATION
  Report Type: Spontaneous
  Country: BR (occurrence: BR)
  Receive Date: 20130213
  Receipt Date: 20130213
  Transmission Date: 20140127
  Serious: Yes (Other)
  Sender: FDA-Public Use
  Company Number: PHHY2013BR001434

PATIENT
  Age: 4 Year
  Sex: Female
  Weight: 21 kg

DRUGS (2)
  1. TRILEPTAL [Suspect]
     Indication: EPILEPSY
     Dosage: 2.5 ML, BID
     Route: 048
     Dates: end: 20121022
  2. COMBINATIONS OF VITAMINS [Concomitant]
     Indication: IMMUNOLOGY TEST
     Dosage: 9 DF, PER DAY
     Route: 048
     Dates: start: 201211

REACTIONS (2)
  - Brain mass [Not Recovered/Not Resolved]
  - Pyrexia [Recovered/Resolved]
